FAERS Safety Report 8205119-5 (Version None)
Quarter: 2012Q1

REPORT INFORMATION
  Report Type: 
  Country: None (occurrence: None)
  Receive Date: 20120313
  Receipt Date: 20120307
  Transmission Date: 20120608
  Serious: Yes (Other)
  Sender: FDA-Public Use
  Company Number: US-GLAXOSMITHKLINE-A0915064A

PATIENT
  Age: 55 Year
  Sex: Female

DRUGS (9)
  1. ALBUTEROL [Concomitant]
  2. VENTOLIN [Suspect]
     Indication: ASTHMA
     Dosage: 2PUFF FOUR TIMES PER DAY
     Dates: start: 20090101
  3. ATROVENT [Concomitant]
  4. LEVOTHYROXINE SODIUM [Concomitant]
  5. CELEXA [Concomitant]
  6. PROAIR HFA [Concomitant]
  7. THEOPHYLLINE [Concomitant]
  8. PREDNISONE [Concomitant]
  9. ADVAIR DISKUS 100/50 [Suspect]
     Indication: ASTHMA
     Dosage: 1PUFF TWICE PER DAY
     Route: 055
     Dates: start: 20110211

REACTIONS (5)
  - PRODUCT QUALITY ISSUE [None]
  - DRUG INEFFECTIVE [None]
  - UNDERDOSE [None]
  - ASTHMA [None]
  - COUGH [None]
